FAERS Safety Report 10968426 (Version 3)
Quarter: 2015Q2

REPORT INFORMATION
  Report Type: Spontaneous
  Country: US (occurrence: US)
  Receive Date: 20150330
  Receipt Date: 20150512
  Transmission Date: 20150821
  Serious: Yes (Hospitalization, Other)
  Sender: FDA-Public Use
  Company Number: US-009507513-1503USA009482

PATIENT
  Age: 52 Year
  Sex: Male
  Weight: 86 kg

DRUGS (2)
  1. PRINIVIL [Suspect]
     Active Substance: LISINOPRIL
     Indication: HYPERTENSION
     Dosage: 20 MG, UNK
     Route: 048
     Dates: start: 201208, end: 20121208
  2. PREDNISONE. [Concomitant]
     Active Substance: PREDNISONE

REACTIONS (5)
  - Rash [Recovered/Resolved]
  - Hypotension [Recovered/Resolved]
  - Angioedema [Recovered/Resolved]
  - Acute kidney injury [Recovered/Resolved]
  - Drug hypersensitivity [Recovered/Resolved]

NARRATIVE: CASE EVENT DATE: 20121106
